FAERS Safety Report 18072924 (Version 1)
Quarter: 2020Q3

REPORT INFORMATION
  Report Type: Spontaneous
  Country: US (occurrence: US)
  Receive Date: 20200727
  Receipt Date: 20200727
  Transmission Date: 20201103
  Serious: Yes (Disabling)
  Sender: FDA-Public Use
  Company Number: None

PATIENT
  Age: 38 Year
  Sex: Male
  Weight: 122.4 kg

DRUGS (14)
  1. BORN BASIC. ANTI?BAC HAND SANITIZER 65 PERCENT [Suspect]
     Active Substance: ALCOHOL
     Indication: INFECTION PROPHYLAXIS
     Route: 061
     Dates: start: 20200625, end: 20200727
  2. OMNIPOD EROS INSULIN PUMP [Concomitant]
  3. NOVOLOG [Concomitant]
     Active Substance: INSULIN ASPART
  4. CORLANOR [Concomitant]
     Active Substance: IVABRADINE HYDROCHLORIDE
  5. ENTRESTO [Concomitant]
     Active Substance: SACUBITRIL\VALSARTAN
  6. FARZIGA [Concomitant]
  7. DEXCOM G6 CGM [Concomitant]
  8. VICTOZA [Concomitant]
     Active Substance: LIRAGLUTIDE
  9. SUBCUTANEOUS DEFIBRILLATOR [Concomitant]
  10. AMLODIPINE BESYLATE. [Concomitant]
     Active Substance: AMLODIPINE BESYLATE
  11. ODANSETRON ODT [Concomitant]
  12. FLUOZETINE HCL [Concomitant]
  13. ATORVASTATIN [Concomitant]
     Active Substance: ATORVASTATIN
  14. TAZODONE [Concomitant]

REACTIONS (7)
  - Recalled product administered [None]
  - Nausea [None]
  - Asthenia [None]
  - Headache [None]
  - Bacterial infection [None]
  - Diarrhoea infectious [None]
  - Abdominal pain upper [None]

NARRATIVE: CASE EVENT DATE: 20200625
